FAERS Safety Report 9891652 (Version 1)
Quarter: 2014Q1

REPORT INFORMATION
  Report Type: Spontaneous
  Country: GB (occurrence: GB)
  Receive Date: 20140212
  Receipt Date: 20140212
  Transmission Date: 20141002
  Serious: Yes (Other)
  Sender: FDA-Public Use
  Company Number: PHHY2014GB015552

PATIENT
  Age: 44 Year
  Sex: Male

DRUGS (14)
  1. BASILIXIMAB [Suspect]
     Indication: RENAL TRANSPLANT
     Route: 051
  2. TACROLIMUS [Suspect]
     Indication: RENAL TRANSPLANT
  3. METHYLPREDNISOLONE [Concomitant]
     Indication: RENAL TRANSPLANT
     Dosage: 500 MG, UNK
     Route: 051
  4. MYCOPHENOLATE MOFETIL [Concomitant]
     Indication: RENAL TRANSPLANT
  5. CO-TRIMOXAZOLE [Concomitant]
     Indication: ANTIFUNGAL PROPHYLAXIS
     Route: 048
  6. NYSTATIN [Concomitant]
     Indication: ANTIFUNGAL PROPHYLAXIS
     Route: 048
  7. LANSOPRAZOLE [Concomitant]
     Dosage: 30 MG, UNK
  8. AMLODIPINE [Concomitant]
     Dosage: 10 MG, UNK
  9. DOXAZOSIN [Concomitant]
     Dosage: 8 MG, UNK
  10. ALFACALCIDOL [Concomitant]
     Dosage: 1 UG, UNK
  11. METFORMIN [Concomitant]
     Dosage: 1 G, UNK
  12. FOLIC ACID [Concomitant]
     Dosage: 5 MG, UNK
  13. CICLOSPORIN [Concomitant]
  14. PREDNISOLONE [Concomitant]

REACTIONS (11)
  - Guillain-Barre syndrome [Recovered/Resolved]
  - Muscular weakness [Recovered/Resolved]
  - Abasia [Recovered/Resolved]
  - Asthenia [Recovered/Resolved]
  - Clumsiness [Recovered/Resolved]
  - Areflexia [Recovered/Resolved]
  - Joint range of motion decreased [Recovered/Resolved]
  - Demyelination [Recovered/Resolved]
  - Grip strength decreased [Recovered/Resolved]
  - CSF protein increased [Recovered/Resolved]
  - Polyneuropathy [Recovered/Resolved]
